FAERS Safety Report 23961562 (Version 1)
Quarter: 2024Q2

REPORT INFORMATION
  Report Type: Spontaneous
  Country: US (occurrence: US)
  Receive Date: 20240611
  Receipt Date: 20240611
  Transmission Date: 20240716
  Serious: Yes (Other)
  Sender: FDA-Public Use
  Company Number: US-009507513-2406USA001927

PATIENT
  Age: 70 Year
  Sex: Male

DRUGS (9)
  1. DIFICID [Suspect]
     Active Substance: FIDAXOMICIN
     Indication: Clostridium difficile infection
     Dosage: 200 MILLIGRAM, 2 TIMES A DAY
     Route: 048
     Dates: start: 20240604
  2. IRON [Concomitant]
     Active Substance: IRON
     Dosage: UNK
  3. LEVOTHYROXINE [Concomitant]
     Active Substance: LEVOTHYROXINE\LEVOTHYROXINE SODIUM
     Dosage: UNK
  4. ACEBUTOLOL [Concomitant]
     Active Substance: ACEBUTOLOL
     Dosage: UNK
  5. FLECAINIDE [Concomitant]
     Active Substance: FLECAINIDE
     Dosage: UNK
  6. TELMISARTAN [Concomitant]
     Active Substance: TELMISARTAN
  7. AMITRIPTYLINE [Concomitant]
     Active Substance: AMITRIPTYLINE
  8. ALLOPURINOL [Concomitant]
     Active Substance: ALLOPURINOL
  9. IMODIUM [Concomitant]
     Active Substance: LOPERAMIDE HYDROCHLORIDE
     Indication: Clostridium difficile infection
     Dosage: UNK

REACTIONS (1)
  - Haematochezia [Not Recovered/Not Resolved]

NARRATIVE: CASE EVENT DATE: 20240604
